FAERS Safety Report 19745907 (Version 1)
Quarter: 2021Q3

REPORT INFORMATION
  Report Type: Spontaneous
  Country: IL (occurrence: IL)
  Receive Date: 20210825
  Receipt Date: 20210825
  Transmission Date: 20211014
  Serious: Yes (Other)
  Sender: FDA-Public Use
  Company Number: NVSC2021IL188541

PATIENT
  Age: 80 Year
  Sex: Female

DRUGS (1)
  1. LOPRESOR [Suspect]
     Active Substance: METOPROLOL
     Indication: HYPERTENSION
     Dosage: 100 UNK, BID
     Route: 065
     Dates: start: 1980

REACTIONS (3)
  - Product dose omission issue [Unknown]
  - Dementia Alzheimer^s type [Unknown]
  - Dysphagia [Unknown]

NARRATIVE: CASE EVENT DATE: 201304
